FAERS Safety Report 13339600 (Version 2)
Quarter: 2017Q1

REPORT INFORMATION
  Report Type: Report from Study
  Country: BR (occurrence: BR)
  Receive Date: 20170315
  Receipt Date: 20170323
  Transmission Date: 20170428
  Serious: Yes (Hospitalization, Other)
  Sender: FDA-Public Use
  Company Number: BR-ALEXION PHARMACEUTICALS INC.-A201700617

PATIENT
  Age: 18 Year
  Sex: Female

DRUGS (2)
  1. SOLIRIS [Suspect]
     Active Substance: ECULIZUMAB
     Indication: HAEMOLYTIC URAEMIC SYNDROME
     Dosage: 900 MG, QW
     Route: 042
     Dates: start: 20150801, end: 20150822
  2. SOLIRIS [Suspect]
     Active Substance: ECULIZUMAB
     Dosage: 1200 MG, Q2W
     Route: 042
     Dates: start: 20150829

REACTIONS (10)
  - Exposure during pregnancy [Not Recovered/Not Resolved]
  - Headache [Recovered/Resolved]
  - Platelet count decreased [Not Recovered/Not Resolved]
  - Pre-eclampsia [Unknown]
  - Oliguria [Recovering/Resolving]
  - Blood lactate dehydrogenase increased [Not Recovered/Not Resolved]
  - Caesarean section [Recovering/Resolving]
  - Weight increased [Unknown]
  - Visual impairment [Recovered/Resolved]
  - Female sterilisation [Recovering/Resolving]

NARRATIVE: CASE EVENT DATE: 20170203
